FAERS Safety Report 5265855-X (Version None)
Quarter: 2007Q1

REPORT INFORMATION
  Report Type: 
  Country: None (occurrence: None)
  Receive Date: 20070312
  Receipt Date: 20070312
  Transmission Date: 20070707
  Serious: Yes (Hospitalization)
  Sender: FDA-Public Use
  Company Number: None

PATIENT
  Sex: Female
  Weight: 58.514 kg

DRUGS (1)
  1. REMICADE [Suspect]
     Indication: CROHN'S DISEASE
     Dosage: 500MG   EVERY 8 WEEKS   IV BOLUS
     Route: 040
     Dates: start: 20060613, end: 20070130

REACTIONS (1)
  - MYOCARDIAL INFARCTION [None]
